FAERS Safety Report 5415132-9 (Version None)
Quarter: 2007Q3

REPORT INFORMATION
  Report Type: 
  Country: None (occurrence: None)
  Receive Date: 20070815
  Receipt Date: 20070620
  Transmission Date: 20080115
  Serious: No
  Sender: FDA-Public Use
  Company Number: A0659508A

PATIENT
  Age: 73 Year
  Sex: Male

DRUGS (7)
  1. COREG CR [Suspect]
     Indication: HYPERTENSION
     Dosage: 1CAP PER DAY
     Route: 048
     Dates: start: 20070619
  2. BENICAR [Concomitant]
  3. PLAVIX [Concomitant]
  4. PRAVACHOL [Concomitant]
  5. ASPIRIN [Concomitant]
  6. ACTOS [Concomitant]
  7. NEXIUM [Concomitant]

REACTIONS (1)
  - DIZZINESS [None]
